FAERS Safety Report 6291362-1 (Version None)
Quarter: 2009Q3

REPORT INFORMATION
  Report Type: 
  Country: None (occurrence: None)
  Receive Date: 20090728
  Receipt Date: 20090728
  Transmission Date: 20100115
  Serious: No
  Sender: FDA-Public Use
  Company Number: None

PATIENT
  Age: 61 Year
  Sex: Male
  Weight: 88.4514 kg

DRUGS (1)
  1. ZICAM OVER THE COUNTER NOSE SWABS [Suspect]
     Indication: NASOPHARYNGITIS

REACTIONS (2)
  - DYSGEUSIA [None]
  - HYPOSMIA [None]
